FAERS Safety Report 5637331-3 (Version None)
Quarter: 2008Q1

REPORT INFORMATION
  Report Type: 
  Country: None (occurrence: None)
  Receive Date: 20080225
  Receipt Date: 20080211
  Transmission Date: 20080703
  Serious: Yes (Other)
  Sender: FDA-Public Use
  Company Number: DE-ROCHE-548255

PATIENT
  Age: 55 Year
  Sex: Male

DRUGS (2)
  1. LARIAM [Suspect]
     Indication: DRUG USE FOR UNKNOWN INDICATION
     Route: 048
  2. DOXAM [Concomitant]

REACTIONS (3)
  - CARDIOVASCULAR INSUFFICIENCY [None]
  - DEPRESSION [None]
  - SUICIDAL IDEATION [None]
